FAERS Safety Report 24074800 (Version 1)
Quarter: 2024Q3

REPORT INFORMATION
  Report Type: Spontaneous
  Country: GB (occurrence: None)
  Receive Date: 20240710
  Receipt Date: 20240710
  Transmission Date: 20241017
  Serious: Yes (Other)
  Sender: ASTRAZENECA
  Company Number: 2024A152106

PATIENT
  Sex: Female
  Weight: 64 kg

DRUGS (1)
  1. TEZSPIRE [Suspect]
     Active Substance: TEZEPELUMAB-EKKO
     Indication: Severe asthma with fungal sensitisation
     Dosage: 210 PER 4 WEEKS

REACTIONS (1)
  - Menstruation delayed [Recovered/Resolved]
